FAERS Safety Report 19443714 (Version 1)
Quarter: 2021Q2

REPORT INFORMATION
  Report Type: Spontaneous
  Country: LV (occurrence: LV)
  Receive Date: 20210621
  Receipt Date: 20210621
  Transmission Date: 20210717
  Serious: Yes (Hospitalization, Other)
  Sender: FDA-Public Use
  Company Number: LV-VIIV HEALTHCARE LIMITED-LV2021EME130976

PATIENT
  Age: 61 Year
  Sex: Female

DRUGS (1)
  1. ABACAVIRSULPHATE+DOLUTEGRAVIR+LAMIVUDINE [Suspect]
     Active Substance: ABACAVIR SULFATE\DOLUTEGRAVIR SODIUM\LAMIVUDINE
     Indication: HIV INFECTION
     Dosage: UNK

REACTIONS (10)
  - Pulmonary arterial hypertension [Unknown]
  - Coronary artery disease [Unknown]
  - Essential hypertension [Unknown]
  - Hepatosplenomegaly [Unknown]
  - Arteriosclerosis coronary artery [Unknown]
  - Malaise [Unknown]
  - Intentional product misuse [Unknown]
  - Blood pressure increased [Unknown]
  - Tracheitis [Unknown]
  - Hypercholesterolaemia [Unknown]

NARRATIVE: CASE EVENT DATE: 2019
